FAERS Safety Report 6896017-8 (Version None)
Quarter: 2010Q3

REPORT INFORMATION
  Report Type: 
  Country: None (occurrence: None)
  Receive Date: 20100802
  Receipt Date: 20100723
  Transmission Date: 20110219
  Serious: Yes (Hospitalization)
  Sender: FDA-Public Use
  Company Number: A0776273A

PATIENT
  Age: 72 Year
  Sex: Male

DRUGS (1)
  1. AVANDIA [Suspect]
     Indication: DIABETES MELLITUS
     Route: 048
     Dates: start: 19880101

REACTIONS (4)
  - CARDIAC FAILURE CONGESTIVE [None]
  - DIALYSIS [None]
  - RENAL INJURY [None]
  - UNEVALUABLE EVENT [None]
